FAERS Safety Report 4430630-2 (Version None)
Quarter: 2004Q3

REPORT INFORMATION
  Report Type: 
  Country: None (occurrence: None)
  Receive Date: 20040817
  Receipt Date: 20040804
  Transmission Date: 20050211
  Serious: Yes (Other)
  Sender: FDA-Public Use
  Company Number: 2004050066

PATIENT
  Age: 65 Year
  Sex: Male
  Weight: 81 kg

DRUGS (5)
  1. ATORVASTATIN CALCIUM [Suspect]
     Indication: ILL-DEFINED DISORDER
     Dosage: 20 MG (20 MG, 1 IN 1 D), ORAL
     Route: 048
  2. SALUTEC (HYDROCHLOROTHIAZIDE, RAMIPRIL) [Concomitant]
  3. SOTALOL HCL [Concomitant]
  4. NITRENDIPINE (NITRENDIPINE) [Concomitant]
  5. ASPIRIN [Concomitant]

REACTIONS (2)
  - MENTAL IMPAIRMENT [None]
  - RETROGRADE AMNESIA [None]
